FAERS Safety Report 18097890 (Version 2)
Quarter: 2020Q3

REPORT INFORMATION
  Report Type: Report from Study
  Country: None (occurrence: MX)
  Receive Date: 20200731
  Receipt Date: 20200805
  Transmission Date: 20201103
  Serious: Yes (Hospitalization)
  Sender: FDA-Public Use
  Company Number: MX-ABBVIE-20K-107-3504440-00

PATIENT
  Age: 17 Year
  Sex: Female

DRUGS (3)
  1. HISTOFIL [Concomitant]
     Indication: PRODUCT USED FOR UNKNOWN INDICATION
  2. ATEKA [Concomitant]
     Indication: COLITIS ULCERATIVE
     Route: 048
  3. HUMIRA [Suspect]
     Active Substance: ADALIMUMAB
     Indication: COLITIS ULCERATIVE
     Route: 058
     Dates: start: 201505

REACTIONS (2)
  - Off label use [Unknown]
  - Post procedural complication [Unknown]

NARRATIVE: CASE EVENT DATE: 20151001
